FAERS Safety Report 10043305 (Version 1)
Quarter: 2014Q1

REPORT INFORMATION
  Report Type: Spontaneous
  Country: US (occurrence: None)
  Receive Date: 20140327
  Receipt Date: 20140327
  Transmission Date: 20141002
  Serious: Yes (Disabling, Congenital Anomaly)
  Sender: FDA-Public Use
  Company Number: None

PATIENT
  Age: 20 Year
  Sex: Female

DRUGS (1)
  1. SLIM 30 MG GREEN VALLEY LLC [Suspect]
     Indication: WEIGHT CONTROL
     Route: 048
     Dates: start: 20080601, end: 20090101

REACTIONS (3)
  - Product quality issue [None]
  - Pregnancy [None]
  - Exposure during pregnancy [None]
